FAERS Safety Report 17824668 (Version 6)
Quarter: 2020Q2

REPORT INFORMATION
  Report Type: Report from Study
  Country: FR (occurrence: FR)
  Receive Date: 20200526
  Receipt Date: 20200624
  Transmission Date: 20200714
  Serious: Yes (Death, Other)
  Sender: FDA-Public Use
  Company Number: FR-ROCHE-2591147

PATIENT
  Age: 59 Year
  Sex: Male

DRUGS (15)
  1. CANCIDAS [Concomitant]
     Active Substance: CASPOFUNGIN ACETATE
  2. CEFEPRIME [Concomitant]
  3. TOCILIZUMAB. [Suspect]
     Active Substance: TOCILIZUMAB
     Indication: COVID-19
     Dosage: DOSE 20 MG/ML?8 MG/KG CONCENTRATE FOR SOLUTION FOR INFUSION
     Route: 042
     Dates: start: 20200403, end: 20200403
  4. TOCILIZUMAB. [Suspect]
     Active Substance: TOCILIZUMAB
     Dosage: DOSE 20 MG/ML?8 MG/KG CONCENTRATE FOR SOLUTION FOR INFUSION
     Route: 042
     Dates: start: 20200403, end: 20200403
  5. PROPOFOL. [Concomitant]
     Active Substance: PROPOFOL
  6. MEROPENEM. [Concomitant]
     Active Substance: MEROPENEM
  7. NORADRENALINE [NOREPINEPHRINE] [Concomitant]
     Active Substance: NOREPINEPHRINE
  8. TAZOCILLINE [Concomitant]
     Active Substance: PIPERACILLIN SODIUM\TAZOBACTAM SODIUM
  9. VANCOMYCINE [VANCOMYCIN] [Concomitant]
     Active Substance: VANCOMYCIN
  10. CEFEPIME [Concomitant]
     Active Substance: CEFEPIME HYDROCHLORIDE
  11. ROVAMYCINE [SPIRAMYCIN] [Concomitant]
     Active Substance: SPIRAMYCIN
  12. TAMIFLU [Concomitant]
     Active Substance: OSELTAMIVIR PHOSPHATE
  13. CLAFORAN [Concomitant]
     Active Substance: CEFOTAXIME SODIUM
  14. CEFEPIME [Concomitant]
     Active Substance: CEFEPIME HYDROCHLORIDE
  15. IRBESARTAN. [Concomitant]
     Active Substance: IRBESARTAN

REACTIONS (9)
  - Hypoxia [Fatal]
  - Pneumonia [Not Recovered/Not Resolved]
  - Pneumonia bacterial [Fatal]
  - Serratia bacteraemia [Fatal]
  - Serratia infection [Not Recovered/Not Resolved]
  - Enterococcal infection [Fatal]
  - Candida infection [Fatal]
  - Septic shock [Fatal]
  - Ischaemic stroke [Not Recovered/Not Resolved]

NARRATIVE: CASE EVENT DATE: 20200411
